FAERS Safety Report 17447276 (Version 2)
Quarter: 2021Q1

REPORT INFORMATION
  Report Type: Spontaneous
  Country: CH (occurrence: CH)
  Receive Date: 20200221
  Receipt Date: 20210218
  Transmission Date: 20210419
  Serious: Yes (Hospitalization)
  Sender: FDA-Public Use
  Company Number: CH-BAUSCH-BL-2020-005325

PATIENT
  Age: 39 Year
  Sex: Male
  Weight: 90 kg

DRUGS (6)
  1. IRFEN [Suspect]
     Active Substance: IBUPROFEN
     Indication: BACK PAIN
     Dosage: 4?5 TIMES DAILY
     Route: 048
     Dates: start: 201912
  2. PONSTAN [Suspect]
     Active Substance: MEFENAMIC ACID
     Indication: BACK PAIN
     Dosage: 2?3 TIMES A DAILY
     Route: 048
     Dates: start: 20191214
  3. PONSTAN [Suspect]
     Active Substance: MEFENAMIC ACID
     Dosage: SINCE AGE 14
     Route: 065
     Dates: start: 20191214
  4. OLFEN?75 DUO RELEASE [Suspect]
     Active Substance: DICLOFENAC SODIUM
     Indication: PRODUCT USED FOR UNKNOWN INDICATION
     Dosage: AS NEEDED
     Route: 065
  5. NOVALGIN (METAMIZOLE SODIUM) [Suspect]
     Active Substance: METAMIZOLE SODIUM
     Indication: BACK PAIN
     Dosage: AS NECESSARY, 4 TO 5 TIMES DAILY
     Route: 048
     Dates: start: 20191214
  6. IRFEN [Suspect]
     Active Substance: IBUPROFEN
     Indication: LASER THERAPY
     Dosage: 4?5 TIMES DAILY (TOTAL DURATION: 2 WEEKS)
     Route: 048
     Dates: start: 20191214

REACTIONS (1)
  - Acute kidney injury [Recovering/Resolving]

NARRATIVE: CASE EVENT DATE: 20191214
